FAERS Safety Report 4773166-1 (Version None)
Quarter: 2005Q3

REPORT INFORMATION
  Report Type: 
  Country: None (occurrence: None)
  Receive Date: 20050919
  Receipt Date: 20050912
  Transmission Date: 20060218
  Serious: Yes (Hospitalization)
  Sender: FDA-Public Use
  Company Number: AU-MERCK-0509AUS00063

PATIENT
  Age: 38 Year
  Sex: Female
  Weight: 65 kg

DRUGS (5)
  1. INDOCIN [Suspect]
     Indication: PAIN
     Route: 054
     Dates: start: 20050607, end: 20050609
  2. ONDANSETRON HYDROCHLORIDE [Concomitant]
     Indication: NAUSEA
     Route: 065
     Dates: start: 20050606, end: 20050607
  3. ONDANSETRON HYDROCHLORIDE [Concomitant]
     Indication: VOMITING
     Route: 065
     Dates: start: 20050606, end: 20050607
  4. MORPHINE SULFATE [Concomitant]
     Indication: PAIN
     Route: 065
     Dates: start: 20050606, end: 20050607
  5. CEFAZOLIN SODIUM [Concomitant]
     Route: 065
     Dates: start: 20050606, end: 20050607

REACTIONS (5)
  - ABNORMAL BEHAVIOUR [None]
  - FEELING ABNORMAL [None]
  - HYPERVENTILATION [None]
  - MALAISE [None]
  - URINARY INCONTINENCE [None]
